FAERS Safety Report 13507149 (Version 4)
Quarter: 2018Q1

REPORT INFORMATION
  Report Type: Report from Study
  Country: CN (occurrence: CN)
  Receive Date: 20170503
  Receipt Date: 20180129
  Transmission Date: 20180508
  Serious: Yes (Other)
  Sender: FDA-Public Use
  Company Number: CN-ROCHE-1925692

PATIENT

DRUGS (12)
  1. CISPLATIN. [Concomitant]
     Active Substance: CISPLATIN
     Indication: MALIGNANT PLEURAL EFFUSION
     Dosage: ON DAY1
     Route: 065
  2. BEVACIZUMAB. [Suspect]
     Active Substance: BEVACIZUMAB
     Indication: LUNG ADENOCARCINOMA
  3. CARBOPLATIN. [Concomitant]
     Active Substance: CARBOPLATIN
     Indication: MALIGNANT PLEURAL EFFUSION
     Dosage: AUC=5 ON DAY1
     Route: 065
  4. GEMCITABINE [Concomitant]
     Active Substance: GEMCITABINE\GEMCITABINE HYDROCHLORIDE
     Indication: MALIGNANT PLEURAL EFFUSION
     Dosage: ON DAY1
     Route: 065
  5. PEMETREXED. [Concomitant]
     Active Substance: PEMETREXED
     Indication: MALIGNANT PLEURAL EFFUSION
     Dosage: ON DAY1
     Route: 065
  6. PACLITAXEL. [Concomitant]
     Active Substance: PACLITAXEL
     Indication: MALIGNANT PLEURAL EFFUSION
     Dosage: ON DAY1
     Route: 065
  7. PACLITAXEL. [Concomitant]
     Active Substance: PACLITAXEL
     Indication: LUNG ADENOCARCINOMA
  8. GEMCITABINE [Concomitant]
     Active Substance: GEMCITABINE\GEMCITABINE HYDROCHLORIDE
     Indication: LUNG ADENOCARCINOMA
  9. PEMETREXED. [Concomitant]
     Active Substance: PEMETREXED
     Indication: LUNG ADENOCARCINOMA
  10. CARBOPLATIN. [Concomitant]
     Active Substance: CARBOPLATIN
     Indication: LUNG ADENOCARCINOMA
  11. CISPLATIN. [Concomitant]
     Active Substance: CISPLATIN
     Indication: LUNG ADENOCARCINOMA
  12. BEVACIZUMAB. [Suspect]
     Active Substance: BEVACIZUMAB
     Indication: MALIGNANT PLEURAL EFFUSION
     Route: 042

REACTIONS (18)
  - Haemorrhage [Unknown]
  - Epistaxis [Unknown]
  - Hepatic function abnormal [Unknown]
  - Proteinuria [Unknown]
  - Blood bilirubin increased [Unknown]
  - Dizziness [Unknown]
  - Deep vein thrombosis [Unknown]
  - Phlebitis [Unknown]
  - Hypertension [Unknown]
  - Bone marrow failure [Unknown]
  - Myocardial ischaemia [Unknown]
  - Pneumonia [Unknown]
  - Diarrhoea [Unknown]
  - Headache [Unknown]
  - Gastrointestinal disorder [Unknown]
  - Haemoptysis [Unknown]
  - Arrhythmia [Unknown]
  - Spleen disorder [Unknown]
